FAERS Safety Report 6086821-0 (Version None)
Quarter: 2009Q1

REPORT INFORMATION
  Report Type: 
  Country: None (occurrence: None)
  Receive Date: 20090223
  Receipt Date: 20090123
  Transmission Date: 20090719
  Serious: Yes (Hospitalization)
  Sender: FDA-Public Use
  Company Number: US-PFIZER INC-2009160949

PATIENT
  Sex: Male

DRUGS (1)
  1. CELEBREX [Suspect]
     Dosage: UNK
     Dates: end: 20041226

REACTIONS (14)
  - ANXIETY [None]
  - ATRIAL SEPTAL DEFECT [None]
  - BRONCHITIS [None]
  - CEREBRAL ARTERY EMBOLISM [None]
  - CEREBRAL INFARCTION [None]
  - DEEP VEIN THROMBOSIS [None]
  - FIBROMYALGIA [None]
  - HYPERLIPIDAEMIA [None]
  - HYPERTENSION [None]
  - INTERVERTEBRAL DISC DEGENERATION [None]
  - PARADOXICAL EMBOLISM [None]
  - PEPTIC ULCER [None]
  - TACHYCARDIA [None]
  - TYPE 2 DIABETES MELLITUS [None]
